FAERS Safety Report 19780895 (Version 2)
Quarter: 2022Q3

REPORT INFORMATION
  Report Type: Spontaneous
  Country: US (occurrence: US)
  Receive Date: 20210903
  Receipt Date: 20220922
  Transmission Date: 20221027
  Serious: No
  Sender: FDA-Public Use
  Company Number: US-PURDUE-USA-2020-0160909

PATIENT
  Sex: Male

DRUGS (1)
  1. ACETAMINOPHEN\OXYCODONE HYDROCHLORIDE [Suspect]
     Active Substance: ACETAMINOPHEN\OXYCODONE HYDROCHLORIDE
     Indication: Back pain
     Dosage: 1 OR 2 TABLET, Q6H PRN
     Route: 048

REACTIONS (6)
  - Dizziness [Unknown]
  - Pain [Unknown]
  - Emotional distress [Unknown]
  - Vertigo [Unknown]
  - Balance disorder [Unknown]
  - Paraesthesia [Unknown]
